FAERS Safety Report 11420047 (Version 1)
Quarter: 2015Q3

REPORT INFORMATION
  Report Type: Report from Study
  Country: US (occurrence: US)
  Receive Date: 20150826
  Receipt Date: 20150826
  Transmission Date: 20151125
  Serious: Yes (Hospitalization)
  Sender: FDA-Public Use
  Company Number: US-SA-2015SA127294

PATIENT
  Age: 62 Year
  Sex: Female
  Weight: 51.94 kg

DRUGS (10)
  1. MK-3475 [Suspect]
     Active Substance: PEMBROLIZUMAB
     Indication: BREAST CANCER
     Route: 042
     Dates: start: 20150602, end: 20150602
  2. ZIV-AFLIBERCEPT [Suspect]
     Active Substance: ZIV-AFLIBERCEPT
     Indication: BREAST CANCER
     Route: 042
     Dates: start: 20150602, end: 20150602
  3. VICODIN [Concomitant]
     Active Substance: ACETAMINOPHEN\HYDROCODONE BITARTRATE
     Indication: PAIN
     Route: 065
  4. ZIV-AFLIBERCEPT [Suspect]
     Active Substance: ZIV-AFLIBERCEPT
     Indication: BREAST CANCER
     Dosage: OVER APPROXIMETLY ONE HOUR ON DAY 1
     Route: 042
     Dates: start: 20150519, end: 20150519
  5. COLACE [Concomitant]
     Active Substance: DOCUSATE SODIUM
     Route: 065
  6. NEURONTIN [Concomitant]
     Active Substance: GABAPENTIN
     Route: 065
  7. MK-3475 [Suspect]
     Active Substance: PEMBROLIZUMAB
     Indication: BREAST CANCER
     Route: 042
     Dates: start: 20150519, end: 20150519
  8. LUTEIN [Concomitant]
     Active Substance: LUTEIN
     Route: 065
  9. OXYCODONE [Concomitant]
     Active Substance: OXYCODONE
     Indication: PAIN MANAGEMENT
     Route: 065
  10. OXYCONTIN [Concomitant]
     Active Substance: OXYCODONE HYDROCHLORIDE
     Route: 065

REACTIONS (1)
  - Pericardial effusion [Recovered/Resolved]

NARRATIVE: CASE EVENT DATE: 20150611
